FAERS Safety Report 7998316-5 (Version None)
Quarter: 2011Q4

REPORT INFORMATION
  Report Type: 
  Country: None (occurrence: None)
  Receive Date: 20111221
  Receipt Date: 20110706
  Transmission Date: 20120403
  Serious: No
  Sender: FDA-Public Use
  Company Number: US-GLAXOSMITHKLINE-A0935126A

PATIENT
  Age: 66 Year
  Sex: Female

DRUGS (6)
  1. PREMARIN [Concomitant]
  2. MULTI-VITAMIN [Concomitant]
  3. VITAMIN D [Concomitant]
  4. LOVAZA [Suspect]
     Indication: BLOOD TRIGLYCERIDES INCREASED
     Dosage: 4CAP PER DAY
     Route: 048
     Dates: start: 20110601
  5. COZAAR [Concomitant]
  6. POTASSIUM [Concomitant]

REACTIONS (2)
  - HEADACHE [None]
  - HYPOTENSION [None]
